FAERS Safety Report 5811148-9 (Version None)
Quarter: 2008Q3

REPORT INFORMATION
  Report Type: 
  Country: None (occurrence: None)
  Receive Date: 20080716
  Receipt Date: 20080711
  Transmission Date: 20090109
  Serious: Yes (Death, Hospitalization)
  Sender: FDA-Public Use
  Company Number: FR-WYE-G01848808

PATIENT
  Sex: Male

DRUGS (4)
  1. TAZOCILLINE [Suspect]
     Indication: SEPTIC SHOCK
     Dosage: UNKNOWN
     Route: 042
     Dates: start: 20080110, end: 20080130
  2. PHENOBARBITAL TAB [Suspect]
     Indication: STATUS EPILEPTICUS
     Dosage: UNKNOWN
     Route: 042
     Dates: end: 20080130
  3. ROCEPHIN [Concomitant]
     Indication: SEPTIC SHOCK
     Dosage: UNKNOWN
     Route: 042
     Dates: start: 20080101
  4. ZYVOXID [Suspect]
     Indication: SEPTIC SHOCK
     Dosage: UNKNOWN
     Route: 042
     Dates: start: 20080110, end: 20080130

REACTIONS (4)
  - ANAEMIA [None]
  - CONDITION AGGRAVATED [None]
  - MULTI-ORGAN FAILURE [None]
  - THROMBOCYTOPENIA [None]
